FAERS Safety Report 6551019-6 (Version None)
Quarter: 2010Q1

REPORT INFORMATION
  Report Type: 
  Country: None (occurrence: None)
  Receive Date: 20100125
  Receipt Date: 20100115
  Transmission Date: 20100710
  Serious: Yes (Hospitalization)
  Sender: FDA-Public Use
  Company Number: FR-AMGEN-US387223

PATIENT
  Sex: Female

DRUGS (11)
  1. ENBREL [Suspect]
     Indication: RHEUMATOID ARTHRITIS
     Route: 058
     Dates: start: 20050601, end: 20090930
  2. CORTANCYL [Concomitant]
     Indication: RHEUMATOID ARTHRITIS
     Dosage: 3 MG TOTAL DAILY
     Route: 048
     Dates: start: 20050601
  3. IKOREL [Concomitant]
     Route: 048
  4. CRESTOR [Concomitant]
     Route: 048
  5. UVEDOSE [Concomitant]
     Dosage: 1 AMPULE EVERY 3 MONTHS
     Route: 048
  6. AMLOR [Concomitant]
     Route: 048
  7. KARDEGIC [Concomitant]
     Route: 065
  8. NEXIUM [Concomitant]
     Route: 048
  9. GAVISCON [Concomitant]
     Route: 048
  10. ARAVA [Concomitant]
     Indication: RHEUMATOID ARTHRITIS
     Route: 058
     Dates: start: 20050601
  11. TENORMIN [Concomitant]
     Route: 065

REACTIONS (4)
  - CHONDROCALCINOSIS PYROPHOSPHATE [None]
  - EPIDURITIS [None]
  - MENINGITIS ASEPTIC [None]
  - PUSTULAR PSORIASIS [None]
